FAERS Safety Report 18564806 (Version 2)
Quarter: 2020Q4

REPORT INFORMATION
  Report Type: Spontaneous
  Country: JP (occurrence: JP)
  Receive Date: 20201201
  Receipt Date: 20201207
  Transmission Date: 20210114
  Serious: Yes (Death, Other)
  Sender: FDA-Public Use
  Company Number: JP-JAZZ-2020-JP-015859

PATIENT
  Sex: Male

DRUGS (1)
  1. DEFITELIO [Suspect]
     Active Substance: DEFIBROTIDE SODIUM
     Indication: VENOOCCLUSIVE LIVER DISEASE
     Dosage: 25 MILLIGRAM/KG/DAY
     Route: 042
     Dates: start: 20201102, end: 20201124

REACTIONS (2)
  - Venoocclusive liver disease [Fatal]
  - Disease progression [Fatal]

NARRATIVE: CASE EVENT DATE: 20201124
